FAERS Safety Report 12840222 (Version 1)
Quarter: 2016Q4

REPORT INFORMATION
  Report Type: Spontaneous
  Country: FR (occurrence: FR)
  Receive Date: 20161012
  Receipt Date: 20161012
  Transmission Date: 20170207
  Serious: Yes (Hospitalization, Congenital Anomaly)
  Sender: FDA-Public Use
  Company Number: FR-PFIZER INC-2016461543

PATIENT
  Sex: Male
  Weight: 3.16 kg

DRUGS (7)
  1. XANAX [Suspect]
     Active Substance: ALPRAZOLAM
     Route: 064
  2. TERCIAN /00759301/ [Suspect]
     Active Substance: CYAMEMAZINE
     Route: 064
  3. THERALENE [Suspect]
     Active Substance: TRIMEPRAZINE
     Route: 064
  4. IMOVANE [Suspect]
     Active Substance: ZOPICLONE
     Route: 064
  5. DEROXAT [Suspect]
     Active Substance: PAROXETINE HYDROCHLORIDE
     Route: 064
  6. LEPTICUR [Suspect]
     Active Substance: TROPATEPINE HYDROCHLORIDE
     Route: 064
  7. HALDOL [Suspect]
     Active Substance: HALOPERIDOL
     Route: 064

REACTIONS (8)
  - Tremor [Unknown]
  - Premature baby [Unknown]
  - Withdrawal syndrome [Unknown]
  - Neonatal respiratory distress syndrome [Recovered/Resolved]
  - Foot deformity [Unknown]
  - Maternal exposure during pregnancy [Unknown]
  - Infantile apnoea [Recovered/Resolved]
  - Macrosomia [Unknown]

NARRATIVE: CASE EVENT DATE: 20160205
